FAERS Safety Report 8463240-0 (Version None)
Quarter: 2012Q2

REPORT INFORMATION
  Report Type: 
  Country: None (occurrence: None)
  Receive Date: 20120625
  Receipt Date: 20120614
  Transmission Date: 20120825
  Serious: Yes (Hospitalization, Other)
  Sender: FDA-Public Use
  Company Number: US-ACTELION-A-US2012-67395

PATIENT

DRUGS (4)
  1. TRACLEER [Suspect]
     Indication: PULMONARY ARTERIAL HYPERTENSION
     Dosage: UNK
     Route: 048
     Dates: start: 20111024
  2. SILDENAFIL [Concomitant]
  3. AMICAR [Concomitant]
  4. TYVASO [Concomitant]

REACTIONS (5)
  - HYPOAESTHESIA ORAL [None]
  - WEIGHT DECREASED [None]
  - CONVULSION [None]
  - DYSARTHRIA [None]
  - HEMIPARESIS [None]
